FAERS Safety Report 5803465-3 (Version None)
Quarter: 2008Q2

REPORT INFORMATION
  Report Type: 
  Country: None (occurrence: None)
  Receive Date: 20080627
  Receipt Date: 20071015
  Transmission Date: 20081010
  Serious: Yes (Disabling)
  Sender: FDA-Public Use
  Company Number: 528307

PATIENT
  Age: 58 Year

DRUGS (1)
  1. INTERFERON ALFA [Suspect]
     Indication: NEOPLASM MALIGNANT
     Dosage: 20000000 IU 3 PER WEEK
     Route: 015

REACTIONS (2)
  - ANXIETY [None]
  - DEPRESSION [None]
